FAERS Safety Report 5877380-3 (Version None)
Quarter: 2008Q3

REPORT INFORMATION
  Report Type: 
  Country: None (occurrence: None)
  Receive Date: 20080908
  Receipt Date: 20080822
  Transmission Date: 20090109
  Serious: Yes (Other)
  Sender: FDA-Public Use
  Company Number: STI-2008-02780

PATIENT
  Age: 40 Year
  Sex: Female

DRUGS (1)
  1. CLINDOXYL [Suspect]
     Indication: ACNE
     Dosage: (AT NIGHT) ALL OVER FACE
     Dates: start: 20080815, end: 20080801

REACTIONS (5)
  - DYSPNOEA [None]
  - MIDDLE INSOMNIA [None]
  - NASAL CONGESTION [None]
  - RHINITIS [None]
  - SNEEZING [None]
